FAERS Safety Report 10235067 (Version 1)
Quarter: 2014Q2

REPORT INFORMATION
  Report Type: Report from Study
  Country: AR (occurrence: AR)
  Receive Date: 20140613
  Receipt Date: 20140613
  Transmission Date: 20141212
  Serious: Yes (Hospitalization, Other)
  Sender: FDA-Public Use
  Company Number: PHHY2014AR072332

PATIENT
  Age: 43 Year
  Sex: Female

DRUGS (1)
  1. ONBREZ [Suspect]
     Indication: CHRONIC OBSTRUCTIVE PULMONARY DISEASE
     Dosage: 150 UG, UNK
     Route: 055
     Dates: start: 201309, end: 201309

REACTIONS (6)
  - Viral infection [Unknown]
  - Platelet count decreased [Unknown]
  - Panic attack [Unknown]
  - Retching [Unknown]
  - Vomiting [Unknown]
  - Agitation [Not Recovered/Not Resolved]
